FAERS Safety Report 7648139-1 (Version None)
Quarter: 2011Q3

REPORT INFORMATION
  Report Type: 
  Country: None (occurrence: None)
  Receive Date: 20110801
  Receipt Date: 20110730
  Transmission Date: 20111222
  Serious: Yes (Other)
  Sender: FDA-Public Use
  Company Number: US-PFIZER INC-2011154679

PATIENT
  Sex: Female
  Weight: 77.098 kg

DRUGS (11)
  1. MICROZIDE [Concomitant]
     Indication: HYPERTENSION
     Dosage: 25 MG, UNK
  2. PHENOBARBITAL TAB [Interacting]
     Dosage: UNK
     Dates: start: 20110101
  3. TYLENOL-500 [Concomitant]
     Indication: BACK PAIN
     Dosage: 500 MG, EVERY 8 HOURS
     Dates: start: 20050101
  4. THERADERM [Concomitant]
     Indication: PAIN IN EXTREMITY
  5. CYMBALTA [Concomitant]
     Dosage: 90 MG, UNK
  6. THERADERM [Concomitant]
     Indication: MUSCULOSKELETAL PAIN
     Dosage: UNK
     Route: 061
     Dates: start: 20050101
  7. CHANTIX [Interacting]
     Dosage: 1 MG, 2X/DAY
     Route: 048
  8. CYMBALTA [Concomitant]
     Dosage: 45 MG, UNK
  9. TRAZODONE [Concomitant]
     Indication: INSOMNIA
     Dosage: 100 MG, DAILY
  10. CHANTIX [Suspect]
     Indication: SMOKING CESSATION THERAPY
     Dosage: 0.5 MG, DAILY
     Route: 048
     Dates: start: 20110703
  11. LYRICA [Concomitant]
     Indication: COMPLEX REGIONAL PAIN SYNDROME
     Dosage: 300 MG, 1X/DAY
     Route: 048
     Dates: start: 20060101

REACTIONS (7)
  - HYPERSOMNIA [None]
  - NERVOUSNESS [None]
  - DEPRESSION [None]
  - ARTHRITIS INFECTIVE [None]
  - DRUG INTERACTION [None]
  - CHRONIC OBSTRUCTIVE PULMONARY DISEASE [None]
  - ANXIETY [None]
